FAERS Safety Report 7071089-9 (Version None)
Quarter: 2010Q4

REPORT INFORMATION
  Report Type: 
  Country: None (occurrence: None)
  Receive Date: 20101029
  Receipt Date: 20100924
  Transmission Date: 20110411
  Serious: Yes (Other)
  Sender: FDA-Public Use
  Company Number: US-SANOFI-AVENTIS-2010SA052971

PATIENT
  Age: 69 Year
  Sex: Male
  Weight: 60 kg

DRUGS (10)
  1. PLAVIX [Suspect]
     Route: 048
     Dates: start: 20100609
  2. ASPIRIN [Concomitant]
  3. METOPROLOL [Concomitant]
  4. ROSUVASTATIN CALCIUM [Concomitant]
  5. RANITIDINE [Concomitant]
  6. MULTI-VITAMINS [Concomitant]
  7. COENZYME Q10 [Concomitant]
  8. ALBUTEROL [Concomitant]
  9. OXYGEN [Concomitant]
  10. ALL OTHER THERAPEUTIC PRODUCTS [Concomitant]

REACTIONS (6)
  - FATIGUE [None]
  - FURUNCLE [None]
  - GASTROOESOPHAGEAL REFLUX DISEASE [None]
  - HEADACHE [None]
  - NAUSEA [None]
  - WEIGHT DECREASED [None]
